FAERS Safety Report 9401639 (Version 1)
Quarter: 2013Q3

REPORT INFORMATION
  Report Type: Spontaneous
  Country: DE (occurrence: DE)
  Receive Date: 20130716
  Receipt Date: 20130716
  Transmission Date: 20140515
  Serious: Yes (Other)
  Sender: FDA-Public Use
  Company Number: DE-ASTRAZENECA-2013SE46683

PATIENT
  Sex: Male

DRUGS (1)
  1. ATACAND PLUS [Suspect]
     Indication: HYPERTENSION
     Dosage: 16/12.5 MG, 1 DF DAILY
     Route: 048
     Dates: start: 201305

REACTIONS (2)
  - Dyspnoea [Recovered/Resolved]
  - Oedema mucosal [Recovered/Resolved]
